FAERS Safety Report 19089130 (Version 1)
Quarter: 2021Q2

REPORT INFORMATION
  Report Type: Spontaneous
  Country: US (occurrence: US)
  Receive Date: 20210403
  Receipt Date: 20210403
  Transmission Date: 20210717
  Serious: Yes (Hospitalization, Other)
  Sender: FDA-Public Use
  Company Number: US-UNITED THERAPEUTICS-UNT-2021-005042

PATIENT
  Age: 34 Year
  Sex: Female
  Weight: 87.53 kg

DRUGS (3)
  1. SILDENAFIL. [Concomitant]
     Active Substance: SILDENAFIL
     Indication: PRODUCT USED FOR UNKNOWN INDICATION
     Dosage: UNK
     Route: 065
  2. REMODULIN [Suspect]
     Active Substance: TREPROSTINIL
     Indication: PULMONARY ARTERIAL HYPERTENSION
     Dosage: UNK, CONTINUING
     Route: 058
     Dates: start: 20180314
  3. REMODULIN [Suspect]
     Active Substance: TREPROSTINIL
     Dosage: 0.088 ?G/KG, CONTINUING
     Route: 058

REACTIONS (1)
  - COVID-19 [Unknown]

NARRATIVE: CASE EVENT DATE: 20210311
